FAERS Safety Report 7866310-0 (Version None)
Quarter: 2011Q4

REPORT INFORMATION
  Report Type: 
  Country: None (occurrence: None)
  Receive Date: 20111028
  Receipt Date: 20110223
  Transmission Date: 20120403
  Serious: No
  Sender: FDA-Public Use
  Company Number: US-MYLANLABS-2011S1003885

PATIENT
  Sex: Female

DRUGS (6)
  1. MAGNESIUM [Concomitant]
  2. DIAZEPAM [Suspect]
     Indication: MUSCLE RELAXANT THERAPY
     Route: 048
  3. MIRALAX [Suspect]
     Indication: BOWEL PREPARATION
     Route: 048
  4. POTASSIUM [Concomitant]
  5. DIAZEPAM [Suspect]
     Route: 048
  6. DIAZEPAM [Suspect]
     Route: 048
     Dates: start: 20101001

REACTIONS (3)
  - GASTROINTESTINAL DISORDER [None]
  - COLONOSCOPY ABNORMAL [None]
  - REACTION TO DRUG EXCIPIENTS [None]
